FAERS Safety Report 4717765-1 (Version None)
Quarter: 2005Q3

REPORT INFORMATION
  Report Type: 
  Country: None (occurrence: None)
  Receive Date: 20050715
  Receipt Date: 20050601
  Transmission Date: 20060218
  Serious: Yes (Death)
  Sender: FDA-Public Use
  Company Number: 2005-01053

PATIENT
  Sex: Male

DRUGS (4)
  1. INTEGRILIN [Suspect]
     Indication: ACUTE MYOCARDIAL INFARCTION
     Dosage: SEE IMAGE
     Route: 040
  2. ASPIRIN [Concomitant]
  3. HEPARIN [Concomitant]
  4. CLOPIDOGREL BISULFATE [Concomitant]

REACTIONS (1)
  - HAEMATEMESIS [None]
